FAERS Safety Report 5543722-1 (Version None)
Quarter: 2007Q4

REPORT INFORMATION
  Report Type: 
  Country: None (occurrence: None)
  Receive Date: 20071210
  Receipt Date: 20061113
  Transmission Date: 20080405
  Serious: No
  Sender: FDA-Public Use
  Company Number: US-AMGEN-KDL200160

PATIENT
  Sex: Female

DRUGS (2)
  1. ENBREL [Suspect]
     Indication: JUVENILE ARTHRITIS
     Route: 058
     Dates: start: 20061003
  2. AZULFIDINE EN-TABS [Concomitant]
     Dates: start: 20060901

REACTIONS (3)
  - FEELING ABNORMAL [None]
  - HEADACHE [None]
  - THINKING ABNORMAL [None]
